FAERS Safety Report 5378912-4 (Version None)
Quarter: 2007Q3

REPORT INFORMATION
  Report Type: 
  Country: None (occurrence: None)
  Receive Date: 20070705
  Receipt Date: 20070621
  Transmission Date: 20080115
  Serious: Yes (Other)
  Sender: FDA-Public Use
  Company Number: FR-AMGEN-US232028

PATIENT
  Sex: Female

DRUGS (3)
  1. ENBREL [Suspect]
     Indication: DRUG USE FOR UNKNOWN INDICATION
     Dosage: LYOPHILIZED (50 MG 1 TIME WEEKLY)
     Route: 058
     Dates: start: 20040101, end: 20070101
  2. ENBREL [Suspect]
     Dosage: PRE-FILLED SYRINGE (50 MG 1 TIME WEEKLY)
     Route: 058
     Dates: start: 20070101
  3. INTRAUTERINE CONTRACEPTIVE DEVICE [Suspect]
     Indication: CONTRACEPTION
     Dosage: UNKNOWN
     Dates: start: 20070605

REACTIONS (3)
  - ENDOMETRITIS [None]
  - PELVIC PAIN [None]
  - UTERINE DISORDER [None]
